FAERS Safety Report 14157229 (Version 1)
Quarter: 2017Q4

REPORT INFORMATION
  Report Type: Report from Study
  Country: US (occurrence: US)
  Receive Date: 20171105
  Receipt Date: 20171105
  Transmission Date: 20180321
  Serious: No
  Sender: FDA-Public Use
  Company Number: US-ROCHE-2014987

PATIENT
  Age: 66 Year
  Sex: Male

DRUGS (5)
  1. IBUPROFEN. [Concomitant]
     Active Substance: IBUPROFEN
     Indication: PAIN
     Dosage: YES
     Route: 048
  2. VALIUM [Suspect]
     Active Substance: DIAZEPAM
     Indication: PRODUCT USED FOR UNKNOWN INDICATION
     Dosage: PRN AT NIGHT
     Route: 048
  3. HYDROCORTISONE. [Concomitant]
     Active Substance: HYDROCORTISONE
     Indication: PRURITUS
     Dosage: YES
     Route: 061
  4. OCREVUS [Suspect]
     Active Substance: OCRELIZUMAB
     Indication: PRIMARY PROGRESSIVE MULTIPLE SCLEROSIS
     Dosage: YES
     Route: 065
     Dates: start: 20170817
  5. OCREVUS [Suspect]
     Active Substance: OCRELIZUMAB
     Route: 065
     Dates: start: 20170831

REACTIONS (16)
  - Bronchitis [Unknown]
  - Vision blurred [Unknown]
  - Cough [Unknown]
  - Urinary incontinence [Unknown]
  - Fatigue [Unknown]
  - Nocturia [Unknown]
  - Pruritus [Not Recovered/Not Resolved]
  - Dyspnoea [Unknown]
  - Arthralgia [Unknown]
  - Rash [Not Recovered/Not Resolved]
  - Pain [Not Recovered/Not Resolved]
  - Wheezing [Unknown]
  - Gait disturbance [Not Recovered/Not Resolved]
  - Micturition urgency [Unknown]
  - Temperature intolerance [Unknown]
  - Gait disturbance [Unknown]

NARRATIVE: CASE EVENT DATE: 201710
